FAERS Safety Report 6824012-3 (Version None)
Quarter: 2010Q3

REPORT INFORMATION
  Report Type: 
  Country: None (occurrence: None)
  Receive Date: 20100708
  Receipt Date: 20061121
  Transmission Date: 20110219
  Serious: No
  Sender: FDA-Public Use
  Company Number: US-PFIZER INC-2006113919

PATIENT
  Sex: Female
  Weight: 86.18 kg

DRUGS (4)
  1. CHANTIX [Suspect]
     Dates: start: 20060901
  2. DOXYCYCLINE [Suspect]
     Indication: INFECTION
     Dates: start: 20060901
  3. DOXEPIN HCL [Concomitant]
     Indication: INSOMNIA
  4. ZETIA [Concomitant]

REACTIONS (4)
  - ERYTHEMA [None]
  - INFECTION [None]
  - NAUSEA [None]
  - PAIN IN EXTREMITY [None]
